FAERS Safety Report 4887322-5 (Version None)
Quarter: 2005Q4

REPORT INFORMATION
  Report Type: 
  Country: None (occurrence: None)
  Receive Date: 20051221
  Receipt Date: 20051018
  Transmission Date: 20060501
  Serious: No
  Sender: FDA-Public Use
  Company Number: US-YAMANOUCHI-YPA20050442

PATIENT
  Age: 43 Year
  Sex: Female
  Weight: 102.0593 kg

DRUGS (7)
  1. VESICARE [Suspect]
     Indication: HYPERTONIC BLADDER
     Dosage: 5 MG QD PO
     Route: 048
     Dates: start: 20050217
  2. SEROQUEL [Suspect]
     Indication: SCHIZOPHRENIA
     Dosage: 600 MG DAILY PO
     Route: 048
     Dates: start: 20040901
  3. ABILIFY [Concomitant]
  4. KLONOPIN [Concomitant]
  5. EFFEXOR [Concomitant]
  6. COGENTIN [Concomitant]
  7. PROTONIX [Concomitant]

REACTIONS (3)
  - ABDOMINAL DISTENSION [None]
  - FLUID RETENTION [None]
  - STOMACH DISCOMFORT [None]
